FAERS Safety Report 5621810-9 (Version None)
Quarter: 2008Q1

REPORT INFORMATION
  Report Type: 
  Country: None (occurrence: None)
  Receive Date: 20080211
  Receipt Date: 20080204
  Transmission Date: 20080703
  Serious: Yes (Other)
  Sender: FDA-Public Use
  Company Number: PHNU2007DE04240

PATIENT
  Sex: Male

DRUGS (2)
  1. FORADIL [Suspect]
     Dosage: 1 DF, BID
     Dates: start: 20060901
  2. ALVESCO [Concomitant]
     Dosage: TWICE DAILY
     Route: 065
     Dates: start: 20060901

REACTIONS (10)
  - AORTIC VALVE CALCIFICATION [None]
  - AORTIC VALVE STENOSIS [None]
  - BLOOD PRESSURE INCREASED [None]
  - CHEST PAIN [None]
  - CONCOMITANT DISEASE PROGRESSION [None]
  - DYSPNOEA [None]
  - ELECTROCARDIOGRAM ABNORMAL [None]
  - EXERCISE TOLERANCE DECREASED [None]
  - HYPERTROPHY [None]
  - HYPOAESTHESIA [None]
